FAERS Safety Report 10410152 (Version 1)
Quarter: 2014Q3

REPORT INFORMATION
  Report Type: Spontaneous
  Country: US (occurrence: None)
  Receive Date: 20140825
  Receipt Date: 20140825
  Transmission Date: 20150326
  Serious: No
  Sender: FDA-Public Use
  Company Number: None

PATIENT
  Age: 66 Year
  Sex: Female
  Weight: 58.97 kg

DRUGS (1)
  1. AZOPT [Suspect]
     Active Substance: BRINZOLAMIDE
     Indication: NORMAL TENSION GLAUCOMA
     Dosage: ONE DROP TWICE DAILY INTO THE EYE
     Route: 047
     Dates: start: 20140501, end: 20140506

REACTIONS (5)
  - Dyskinesia [None]
  - Feeling abnormal [None]
  - Drug ineffective [None]
  - Tachycardia [None]
  - Muscle tightness [None]

NARRATIVE: CASE EVENT DATE: 20140501
